FAERS Safety Report 7252764-X (Version None)
Quarter: 2011Q1

REPORT INFORMATION
  Report Type: 
  Country: None (occurrence: None)
  Receive Date: 20110129
  Receipt Date: 20100204
  Transmission Date: 20110831
  Serious: No
  Sender: FDA-Public Use
  Company Number: US-ABBOTT-10P-163-0622111-00

PATIENT
  Sex: Female
  Weight: 79.45 kg

DRUGS (5)
  1. UNKNOWN BLOOD PRESSURE MEDICATION [Concomitant]
     Indication: HYPERTENSION
  2. LEXAPRO [Concomitant]
     Indication: DEPRESSION
  3. DICLOFENAC [Concomitant]
     Indication: RHEUMATOID ARTHRITIS
  4. HUMIRA [Suspect]
     Indication: PSORIATIC ARTHROPATHY
     Dates: start: 20091007
  5. METHOTREXATE [Concomitant]
     Indication: PSORIATIC ARTHROPATHY

REACTIONS (4)
  - ERYTHEMA [None]
  - PRURITUS [None]
  - EYE SWELLING [None]
  - FEELING HOT [None]
